FAERS Safety Report 6288687-2 (Version None)
Quarter: 2009Q3

REPORT INFORMATION
  Report Type: 
  Country: None (occurrence: None)
  Receive Date: 20090727
  Receipt Date: 20090718
  Transmission Date: 20100115
  Serious: Yes (Life-Threatening, Hospitalization)
  Sender: FDA-Public Use
  Company Number: ADE2009-0739

PATIENT
  Age: 84 Year
  Sex: Female

DRUGS (5)
  1. SERTRALINE [Suspect]
     Indication: DEPRESSION
     Dosage: 50 MG, DAILY, ORAL
     Route: 048
     Dates: start: 20090625, end: 20090630
  2. ASPIRIN [Concomitant]
  3. DIGITOXIN [Concomitant]
  4. METAPROLOL [Concomitant]
  5. SIMVASTATIN [Concomitant]

REACTIONS (2)
  - HEPATIC CIRRHOSIS [None]
  - HEPATIC ENCEPHALOPATHY [None]
